FAERS Safety Report 9983169 (Version 4)
Quarter: 2014Q2

REPORT INFORMATION
  Report Type: Report from Study
  Country: DE (occurrence: DE)
  Receive Date: 20140307
  Receipt Date: 20140407
  Transmission Date: 20141212
  Serious: Yes (Hospitalization)
  Sender: FDA-Public Use
  Company Number: DE-B.I. PHARMACEUTICALS,INC./RIDGEFIELD-2014-BI-08468II

PATIENT
  Age: 77 Year
  Sex: Male
  Weight: 106 kg

DRUGS (29)
  1. BIBW 2992 [Suspect]
     Indication: PANCREATIC CARCINOMA
     Dosage: 30 MG
     Route: 048
     Dates: start: 20140115, end: 20140223
  2. GEMCITABINE [Suspect]
     Indication: PANCREATIC CARCINOMA
     Dosage: DOSE PER APPLICATION: 1000MG/ METER SQUARE
     Route: 042
     Dates: start: 20140115, end: 20140219
  3. FORMOTEROL 10.4 MG [Concomitant]
     Indication: CHRONIC OBSTRUCTIVE PULMONARY DISEASE
     Dosage: 0.8 MG
     Route: 048
     Dates: start: 2004
  4. SALBUTAMOL DA [Concomitant]
     Indication: CHRONIC OBSTRUCTIVE PULMONARY DISEASE
     Dosage: DAILY DOSE: IF REQUIRED
     Route: 048
     Dates: start: 2004
  5. BUDENOSIDE DA [Concomitant]
     Indication: CHRONIC OBSTRUCTIVE PULMONARY DISEASE
     Dosage: 0.4 MG
     Route: 048
     Dates: start: 2004
  6. DILTIAZEM RET 90 MG [Concomitant]
     Indication: CARDIAC DISORDER
     Dosage: 180 MG
     Route: 048
     Dates: start: 2004
  7. MOLSIDOMIN 8MG [Concomitant]
     Indication: CARDIAC DISORDER
     Dosage: 8 MG
     Route: 048
     Dates: start: 2004
  8. PENTALONG [Concomitant]
     Indication: CARDIAC DISORDER
     Dosage: DAILY DOSE: IF REQUIRED
     Route: 048
     Dates: start: 2011
  9. ISDN 20 MG [Concomitant]
     Indication: CARDIAC DISORDER
     Route: 065
     Dates: start: 201312, end: 20140124
  10. ALLOPURINOL 150MG [Concomitant]
     Indication: HYPERURICAEMIA
     Dosage: 150 MG
     Route: 048
     Dates: start: 2004
  11. PROVAS 160MG [Concomitant]
     Indication: HYPERTENSION
     Dosage: 160 MG
     Route: 048
     Dates: start: 2004
  12. BISOPROLOL COMB 25MG [Concomitant]
     Indication: HYPERTENSION
     Route: 065
     Dates: start: 2011, end: 20140122
  13. ASS 100MG [Concomitant]
     Indication: THROMBOSIS
     Dosage: 100 MG
     Route: 048
     Dates: start: 2011
  14. TORASEMID 20MG [Concomitant]
     Indication: PROPHYLAXIS AGAINST DEHYDRATION
     Route: 065
     Dates: start: 2011, end: 20140225
  15. TORASEMID 20MG [Concomitant]
     Dosage: 10 MG
     Route: 065
     Dates: start: 20140127
  16. OMEPRAZOL 40MG [Concomitant]
     Indication: PROPHYLAXIS
     Dosage: 40 MG
     Route: 048
     Dates: start: 201311
  17. SIMVABELA 20MG [Concomitant]
     Indication: HYPERLIPIDAEMIA
     Dosage: 20 MG
     Route: 048
     Dates: start: 2013
  18. NOVALGIN 1 G [Concomitant]
     Indication: CANCER PAIN
     Dosage: 2 G
     Route: 048
     Dates: start: 201312
  19. FENTANYL TOPIC 12 UG [Concomitant]
     Indication: CANCER PAIN
     Dosage: 12 MCG
     Route: 061
     Dates: start: 20140108
  20. CIPROFLOXACIN 250 MG [Concomitant]
     Indication: HAEMATOMA
     Route: 065
     Dates: start: 20140108, end: 20140117
  21. ZOFRAN 4MG [Concomitant]
     Indication: NAUSEA
     Dosage: DAILY DOSE : IF REQUIRED
     Route: 048
     Dates: start: 20140211
  22. BEPARTHEN MUNDSPULLOSUNG [Concomitant]
     Indication: DRY MOUTH
     Route: 065
     Dates: start: 20140122, end: 20140124
  23. STOMATITIS MUNDSPULLOSUNG [Concomitant]
     Indication: APHTHOUS STOMATITIS
     Dosage: DAILY DOSE: IF REQUIRED
     Route: 048
     Dates: start: 20140124
  24. ARIXTRA HEPARINSPRITIZEN [Concomitant]
     Indication: THROMBOSIS
     Dosage: 7.5 MG
     Route: 058
     Dates: start: 20140127
  25. HALODOL TROPFEN [Concomitant]
     Indication: NAUSEA
     Dosage: 15 ANZ
     Route: 048
     Dates: start: 20140211
  26. FRESUBIN DRINK [Concomitant]
     Indication: NUTRITIONAL SUPPLEMENTATION
     Dosage: DAILY DOSE: IF REQUIRED
     Route: 048
     Dates: start: 20140211
  27. 1000 ML NACL + ASS [Concomitant]
     Indication: CHRONIC OBSTRUCTIVE PULMONARY DISEASE
     Route: 065
     Dates: start: 20140212, end: 20140212
  28. VERGETAN [Concomitant]
     Indication: NAUSEA
     Route: 065
     Dates: start: 20140212, end: 20140212
  29. 1000ML NACL + CERNEVIT [Concomitant]
     Indication: VITAMIN SUPPLEMENTATION
     Route: 065
     Dates: start: 20140218

REACTIONS (4)
  - Diarrhoea [Recovered/Resolved]
  - Dehydration [Recovered/Resolved]
  - General physical health deterioration [Not Recovered/Not Resolved]
  - Nausea [Not Recovered/Not Resolved]
